FAERS Safety Report 5712562-2 (Version None)
Quarter: 2008Q2

REPORT INFORMATION
  Report Type: 
  Country: None (occurrence: None)
  Receive Date: 20080422
  Receipt Date: 20080416
  Transmission Date: 20081010
  Serious: Yes (Hospitalization, Other)
  Sender: FDA-Public Use
  Company Number: ZA-AVENTIS-200813456GDDC

PATIENT
  Age: 42 Year
  Sex: Female

DRUGS (6)
  1. LANTUS [Suspect]
     Route: 058
     Dates: end: 20080201
  2. ASPIRIN [Concomitant]
     Indication: HYPERTENSION
     Dosage: DOSE QUANTITY: 1
     Route: 048
  3. BI PREDONIUM [Concomitant]
     Indication: HYPERTENSION
     Dosage: DOSE QUANTITY: 1
     Route: 048
  4. NUZAK [Concomitant]
     Route: 048
  5. ADCO-SIMVASTATIN [Concomitant]
     Route: 048
  6. GLUCOPHAGE [Concomitant]
     Dates: end: 20080201

REACTIONS (3)
  - BLOOD GLUCOSE INCREASED [None]
  - TACHYCARDIA [None]
  - VISUAL DISTURBANCE [None]
